FAERS Safety Report 18793549 (Version 1)
Quarter: 2021Q1

REPORT INFORMATION
  Report Type: Other
  Country: US (occurrence: US)
  Receive Date: 20210127
  Receipt Date: 20210127
  Transmission Date: 20210419
  Serious: Yes (Congenital Anomaly, Other)
  Sender: FDA-Public Use
  Company Number: US-APTAPHARMA INC.-2105887

PATIENT

DRUGS (4)
  1. CITALOPRAM [Suspect]
     Active Substance: CITALOPRAM HYDROBROMIDE
     Route: 064
  2. ACETAMINOPHEN. [Suspect]
     Active Substance: ACETAMINOPHEN
     Route: 064
  3. ASPIRIN. [Suspect]
     Active Substance: ASPIRIN
     Route: 064
  4. IBUPROFEN. [Suspect]
     Active Substance: IBUPROFEN
     Indication: FOETAL EXPOSURE DURING PREGNANCY
     Route: 064

REACTIONS (5)
  - Placental infarction [Recovered/Resolved]
  - Foetal growth restriction [Recovered/Resolved]
  - Foetal heart rate disorder [Recovered/Resolved]
  - Placental cyst [Recovered/Resolved]
  - Premature baby [Unknown]
